FAERS Safety Report 15750228 (Version 2)
Quarter: 2018Q4

REPORT INFORMATION
  Report Type: Spontaneous
  Country: IT (occurrence: IT)
  Receive Date: 20181221
  Receipt Date: 20181226
  Transmission Date: 20190205
  Serious: Yes (Hospitalization)
  Sender: FDA-Public Use
  Company Number: IT-JNJFOC-20181219463

PATIENT
  Age: 61 Year
  Sex: Male

DRUGS (1)
  1. STELARA [Suspect]
     Active Substance: USTEKINUMAB
     Indication: CROHN^S DISEASE
     Route: 058
     Dates: start: 20180612, end: 20181114

REACTIONS (4)
  - Malignant peritoneal neoplasm [Not Recovered/Not Resolved]
  - Metastases to liver [Unknown]
  - Adenocarcinoma pancreas [Not Recovered/Not Resolved]
  - Metastases to lymph nodes [Unknown]

NARRATIVE: CASE EVENT DATE: 20181114
